FAERS Safety Report 8585864-2 (Version None)
Quarter: 2012Q3

REPORT INFORMATION
  Report Type: 
  Country: None (occurrence: None)
  Receive Date: 20120810
  Receipt Date: 20120721
  Transmission Date: 20120928
  Serious: Yes (Hospitalization)
  Sender: FDA-Public Use
  Company Number: IT-PFIZER INC-2012169740

PATIENT
  Sex: Female

DRUGS (7)
  1. UNASYN [Suspect]
     Dosage: 9 G IN TOTAL IN 4 ADMINISTRATIONS
     Route: 042
     Dates: start: 20120417, end: 20120418
  2. PARACETAMOL [Concomitant]
  3. CLIVARINA [Concomitant]
     Route: 058
  4. CONTRADOL [Concomitant]
  5. TRAMADOL HCL [Concomitant]
     Indication: PAIN
  6. ZANTAC [Concomitant]
  7. TORADOL [Concomitant]
     Indication: PAIN

REACTIONS (1)
  - ANGIOEDEMA [None]
